FAERS Safety Report 18081855 (Version 1)
Quarter: 2020Q3

REPORT INFORMATION
  Report Type: Spontaneous
  Country: US (occurrence: US)
  Receive Date: 20200728
  Receipt Date: 20200728
  Transmission Date: 20201103
  Serious: Yes (Other)
  Sender: FDA-Public Use
  Company Number: US-009507513-2007USA009485

PATIENT
  Sex: Male

DRUGS (5)
  1. CAMPTOSAR [Suspect]
     Active Substance: IRINOTECAN HYDROCHLORIDE
     Dosage: UNK
     Dates: start: 2020
  2. ELOXATIN [Suspect]
     Active Substance: OXALIPLATIN
     Dosage: UNK
     Dates: start: 2020
  3. ATROPINE. [Suspect]
     Active Substance: ATROPINE
     Dosage: UNK
     Dates: start: 2020
  4. EMEND [Suspect]
     Active Substance: APREPITANT
     Dosage: UNK
     Dates: start: 2020
  5. ALOXI [Suspect]
     Active Substance: PALONOSETRON HYDROCHLORIDE
     Dosage: UNK
     Dates: start: 2020

REACTIONS (1)
  - Malignant neoplasm progression [Unknown]

NARRATIVE: CASE EVENT DATE: 2020
